FAERS Safety Report 4386646-8 (Version None)
Quarter: 2004Q2

REPORT INFORMATION
  Report Type: 
  Country: None (occurrence: None)
  Receive Date: 20040623
  Receipt Date: 20040604
  Transmission Date: 20050107
  Serious: Yes (Hospitalization, Other)
  Sender: FDA-Public Use
  Company Number: USA040669203

PATIENT
  Age: 50 Year
  Sex: Male
  Weight: 82 kg

DRUGS (6)
  1. HUMALOG [Suspect]
     Indication: DIABETES MELLITUS
  2. INSULIN [Suspect]
     Indication: DIABETES MELLITUS
     Dates: start: 19530101
  3. INSULIN [Suspect]
     Indication: DIABETES MELLITUS
  4. LANTUS [Concomitant]
  5. CORTISONE [Concomitant]
  6. COUMADIN [Concomitant]

REACTIONS (7)
  - ARTERIAL DISORDER [None]
  - BLOOD GLUCOSE INCREASED [None]
  - INFECTION [None]
  - LEG AMPUTATION [None]
  - SKIN ULCER [None]
  - THROMBOSIS [None]
  - WEIGHT INCREASED [None]
